FAERS Safety Report 5257605-8 (Version None)
Quarter: 2007Q1

REPORT INFORMATION
  Report Type: 
  Country: None (occurrence: None)
  Receive Date: 20070307
  Receipt Date: 20070102
  Transmission Date: 20070707
  Serious: No
  Sender: FDA-Public Use
  Company Number: US-GLAXOSMITHKLINE-A0633247A

PATIENT
  Age: 67 Year
  Sex: Male

DRUGS (5)
  1. REQUIP [Suspect]
     Indication: RESTLESS LEGS SYNDROME
     Dosage: 1.5MG PER DAY
     Route: 048
  2. LISINOPRIL [Concomitant]
  3. FLOMAX [Concomitant]
  4. ROZEREM [Concomitant]
  5. LIPITOR [Concomitant]

REACTIONS (2)
  - DRUG INEFFECTIVE [None]
  - INSOMNIA [None]
